FAERS Safety Report 5978272-1 (Version None)
Quarter: 2008Q4

REPORT INFORMATION
  Report Type: 
  Country: None (occurrence: None)
  Receive Date: 20081204
  Receipt Date: 20081111
  Transmission Date: 20090506
  Serious: No
  Sender: FDA-Public Use
  Company Number: US-BAYER-200838432NA

PATIENT
  Age: 73 Year
  Sex: Male

DRUGS (1)
  1. MAGNEVIST [Suspect]
     Indication: NUCLEAR MAGNETIC RESONANCE IMAGING
     Dosage: TOTAL DAILY DOSE: 17 ML  UNIT DOSE: 20 ML
     Route: 042
     Dates: start: 20081105, end: 20081105

REACTIONS (1)
  - URTICARIA [None]
